FAERS Safety Report 11641702 (Version 1)
Quarter: 2015Q4

REPORT INFORMATION
  Report Type: Spontaneous
  Country: US (occurrence: US)
  Receive Date: 20151019
  Receipt Date: 20151019
  Transmission Date: 20160304
  Serious: No
  Sender: FDA-Public Use
  Company Number: US-DEP_07741_2015

PATIENT
  Age: 50 Year
  Sex: Female

DRUGS (2)
  1. NUCYNTA ER [Suspect]
     Active Substance: TAPENTADOL HYDROCHLORIDE
     Indication: BREAKTHROUGH PAIN
     Dosage: 100 MG, 2/DAY
     Route: 048
  2. NUCYNTA [Suspect]
     Active Substance: TAPENTADOL HYDROCHLORIDE
     Indication: BREAKTHROUGH PAIN
     Dosage: UNK, AS NEEDED

REACTIONS (3)
  - Product quality issue [Unknown]
  - Weight decreased [Unknown]
  - Drug ineffective [Unknown]
